FAERS Safety Report 16830280 (Version 1)
Quarter: 2019Q3

REPORT INFORMATION
  Report Type: Spontaneous
  Country: GR (occurrence: GR)
  Receive Date: 20190920
  Receipt Date: 20190920
  Transmission Date: 20191005
  Serious: Yes (Other)
  Sender: FDA-Public Use
  Company Number: GR-UCBSA-2019039410

PATIENT
  Sex: Female

DRUGS (3)
  1. KEPPRA [Suspect]
     Active Substance: LEVETIRACETAM
     Dosage: 2500MG (1500 + 1000)
     Route: 048
     Dates: start: 201905
  2. KEPPRA [Suspect]
     Active Substance: LEVETIRACETAM
     Indication: EPILEPSY
     Dosage: 2000 MG (1000 + 1000)
     Route: 048
  3. MAGNESIUM [Concomitant]
     Active Substance: MAGNESIUM

REACTIONS (1)
  - Seizure [Unknown]

NARRATIVE: CASE EVENT DATE: 2019
